FAERS Safety Report 8163982-0 (Version None)
Quarter: 2012Q1

REPORT INFORMATION
  Report Type: 
  Country: None (occurrence: None)
  Receive Date: 20120103
  Receipt Date: 20111003
  Transmission Date: 20120608
  Serious: No
  Sender: FDA-Public Use
  Company Number: AE-2011-001992

PATIENT
  Age: 61 Year
  Sex: Male
  Weight: 98.4306 kg

DRUGS (14)
  1. INCIVEK [Suspect]
     Dosage: 2250 MG (750 MG, 3 IN 1 D), ORAL
     Route: 048
     Dates: start: 20110928
  2. LEVOTHYROXINE SODIUM [Concomitant]
  3. HUMULIN INSULIN (NOVOLIN 20/80) [Concomitant]
  4. METOPROLOL TARTRATE [Concomitant]
  5. VITAMIN B12 [Concomitant]
  6. VITAMIN D [Concomitant]
  7. PEGASYS [Concomitant]
  8. GLIMEPIRIDE [Concomitant]
  9. LISINOPRIL [Concomitant]
  10. RIBAVIRIN [Concomitant]
  11. GABAPENTIN [Concomitant]
  12. ASPIRIN [Concomitant]
  13. HYDROCHLOROTHIAZIDE [Concomitant]
  14. FISH OIL (FISH OIL) [Concomitant]

REACTIONS (2)
  - RASH [None]
  - BREAST PAIN [None]
